FAERS Safety Report 6572007-X (Version None)
Quarter: 2010Q1

REPORT INFORMATION
  Report Type: 
  Country: None (occurrence: None)
  Receive Date: 20100201
  Receipt Date: 20100121
  Transmission Date: 20100710
  Serious: Yes (Hospitalization)
  Sender: FDA-Public Use
  Company Number: 2010000314

PATIENT
  Sex: Male

DRUGS (1)
  1. TREANDA [Suspect]
     Indication: CHRONIC LYMPHOCYTIC LEUKAEMIA
     Dosage: INTRAVENOUS
     Route: 042
     Dates: start: 20090401, end: 20090501

REACTIONS (5)
  - FOLLICULITIS [None]
  - HYPERSENSITIVITY [None]
  - NAUSEA [None]
  - NEUTROPENIA [None]
  - RASH [None]
